FAERS Safety Report 18598097 (Version 2)
Quarter: 2020Q4

REPORT INFORMATION
  Report Type: Spontaneous
  Country: US (occurrence: US)
  Receive Date: 20201209
  Receipt Date: 20201217
  Transmission Date: 20210114
  Serious: No
  Sender: FDA-Public Use
  Company Number: US-GLAXOSMITHKLINE-US2020AMR238607

PATIENT
  Sex: Female

DRUGS (2)
  1. ZEJULA [Suspect]
     Active Substance: NIRAPARIB
     Dosage: 200 MG, QD
  2. ZEJULA [Suspect]
     Active Substance: NIRAPARIB
     Indication: OVARIAN CANCER
     Dosage: 200 MG, QD
     Route: 048
     Dates: start: 20201113

REACTIONS (8)
  - Tongue ulceration [Unknown]
  - Hypertension [Unknown]
  - Fatigue [Not Recovered/Not Resolved]
  - Constipation [Unknown]
  - Headache [Unknown]
  - Stomatitis [Unknown]
  - Dry mouth [Unknown]
  - Pain in extremity [Unknown]
